FAERS Safety Report 5291830-5 (Version None)
Quarter: 2007Q2

REPORT INFORMATION
  Report Type: 
  Country: None (occurrence: None)
  Receive Date: 20070410
  Receipt Date: 20070330
  Transmission Date: 20071010
  Serious: No
  Sender: FDA-Public Use
  Company Number: 2006UW11162

PATIENT
  Age: 15714 Day
  Sex: Female
  Weight: 80 kg

DRUGS (3)
  1. SEROQUEL [Suspect]
     Indication: MENTAL DISORDER
     Route: 048
  2. ZYPREXA [Suspect]
     Dates: start: 20030101
  3. CLOZARIL [Concomitant]

REACTIONS (1)
  - DIABETES MELLITUS [None]
